FAERS Safety Report 13986725 (Version 2)
Quarter: 2018Q3

REPORT INFORMATION
  Report Type: Spontaneous
  Country: JP (occurrence: JP)
  Receive Date: 20170919
  Receipt Date: 20180827
  Transmission Date: 20181010
  Serious: Yes (Death, Life-Threatening, Hospitalization)
  Sender: FDA-Public Use
  Company Number: JP-CELGENEUS-JPN-20170903382

PATIENT
  Age: 6 Decade
  Sex: Female

DRUGS (26)
  1. LENADEX [Suspect]
     Active Substance: DEXAMETHASONE ACETATE
     Dosage: 20 MILLIGRAM
     Route: 048
     Dates: start: 20170428, end: 20170616
  2. VELCADE [Suspect]
     Active Substance: BORTEZOMIB
     Indication: PLASMA CELL MYELOMA
     Dosage: UNKNOWN
     Route: 065
     Dates: start: 20120613, end: 20120809
  3. DOXORUBICIN HYDROCHLORIDE. [Suspect]
     Active Substance: DOXORUBICIN HYDROCHLORIDE
     Indication: PLASMA CELL MYELOMA
     Dosage: UNKNOWN
     Route: 041
     Dates: start: 20160329, end: 20170122
  4. PARIET [Concomitant]
     Active Substance: RABEPRAZOLE SODIUM
     Indication: GASTROOESOPHAGEAL REFLUX DISEASE
     Dosage: 10 MILLIGRAM
     Route: 048
  5. CLARITHROMYCIN. [Concomitant]
     Active Substance: CLARITHROMYCIN
     Indication: SUPPORTIVE CARE
     Dosage: 800 MILLIGRAM
     Route: 048
  6. L? CARBOCISTEINE [Concomitant]
     Indication: PRODUCTIVE COUGH
     Dosage: 4500 MILLIGRAM
     Route: 048
  7. ADJUST?A KOWA [Concomitant]
     Indication: CONSTIPATION
     Dosage: 80 MILLIGRAM
     Route: 048
     Dates: end: 20170220
  8. AZOSEMIDE [Concomitant]
     Active Substance: AZOSEMIDE
     Indication: CARDIAC FAILURE CONGESTIVE
     Dosage: 60 MILLIGRAM
     Route: 048
  9. FEBURIC [Concomitant]
     Active Substance: FEBUXOSTAT
     Indication: HYPERURICAEMIA
     Dosage: 20 MILLIGRAM
     Route: 048
  10. TRAMSET [Concomitant]
     Active Substance: ACETAMINOPHEN\TRAMADOL HYDROCHLORIDE
     Indication: PAIN
     Dosage: 4 TABLET
     Route: 048
  11. VFEND [Concomitant]
     Active Substance: VORICONAZOLE
     Indication: SYSTEMIC MYCOSIS
     Dosage: 800 MILLIGRAM
     Route: 048
  12. MAGMITT [Concomitant]
     Active Substance: MAGNESIUM OXIDE
     Indication: CONSTIPATION
     Dosage: 3 TABLET
     Route: 048
  13. LYRICA [Concomitant]
     Active Substance: PREGABALIN
     Indication: NEUROPATHY PERIPHERAL
     Dosage: 25 MILLIGRAM
     Route: 048
  14. REVLIMID [Suspect]
     Active Substance: LENALIDOMIDE
     Dosage: UNKNOWN
     Route: 048
     Dates: end: 201702
  15. LENADEX [Suspect]
     Active Substance: DEXAMETHASONE ACETATE
     Indication: PLASMA CELL MYELOMA
     Dosage: UNKNOWN
     Route: 048
     Dates: end: 201702
  16. FUROSEMIDE. [Concomitant]
     Active Substance: FUROSEMIDE
     Indication: CARDIAC FAILURE CONGESTIVE
     Dosage: 20 MILLIGRAM
     Route: 048
  17. METHYCOBAL [Concomitant]
     Active Substance: METHYLCOBALAMIN
     Indication: NEUROPATHY PERIPHERAL
     Dosage: 9 TABLET
     Route: 048
  18. ACICLOVIR [Concomitant]
     Active Substance: ACYCLOVIR
     Indication: SUPPORTIVE CARE
     Dosage: 200 MILLIGRAM
     Route: 048
     Dates: start: 20170207
  19. REVLIMID [Suspect]
     Active Substance: LENALIDOMIDE
     Dosage: 5 MILLIGRAM
     Route: 048
     Dates: start: 20170428, end: 20170615
  20. LENADEX [Suspect]
     Active Substance: DEXAMETHASONE ACETATE
     Dosage: 20 MILLIGRAM
     Route: 048
     Dates: start: 20170207, end: 20170310
  21. VINCRISTINE SULFATE. [Suspect]
     Active Substance: VINCRISTINE SULFATE
     Indication: PLASMA CELL MYELOMA
     Dosage: UNKNOWN
     Route: 041
     Dates: start: 20160329, end: 20170122
  22. REVLIMID [Suspect]
     Active Substance: LENALIDOMIDE
     Indication: PLASMA CELL MYELOMA
     Dosage: UNKNOWN
     Route: 048
     Dates: start: 20120817, end: 20150415
  23. REVLIMID [Suspect]
     Active Substance: LENALIDOMIDE
     Dosage: 5 MILLIGRAM
     Route: 048
     Dates: start: 20170207, end: 20170310
  24. VELCADE [Suspect]
     Active Substance: BORTEZOMIB
     Dosage: 1.8 MILLIGRAM
     Route: 058
     Dates: start: 20170207
  25. DEXAMETHASONE IV [Suspect]
     Active Substance: DEXAMETHASONE
     Indication: PLASMA CELL MYELOMA
     Dosage: UNKNOWN
     Route: 041
     Dates: start: 20160329, end: 20170122
  26. DAIPHEN [Concomitant]
     Active Substance: SULFAMETHOXAZOLE\TRIMETHOPRIM
     Indication: SUPPORTIVE CARE
     Dosage: 1 TABLET
     Route: 048
     Dates: start: 20170207

REACTIONS (3)
  - Impaired healing [Not Recovered/Not Resolved]
  - Necrotising fasciitis [Not Recovered/Not Resolved]
  - Mesenteric artery thrombosis [Fatal]

NARRATIVE: CASE EVENT DATE: 201702
